FAERS Safety Report 9168078 (Version 2)
Quarter: 2013Q1

REPORT INFORMATION
  Report Type: Spontaneous
  Country: IT (occurrence: None)
  Receive Date: 20130307
  Receipt Date: 20130315
  Transmission Date: 20140127
  Serious: Yes (Other)
  Sender: FDA-Public Use
  Company Number: AUR-APL-2013-01908

PATIENT
  Sex: Female

DRUGS (1)
  1. FINASTERIDE [Suspect]
     Indication: HIRSUTISM

REACTIONS (2)
  - Temporal lobe epilepsy [None]
  - Epilepsy [None]
